FAERS Safety Report 17553108 (Version 1)
Quarter: 2020Q1

REPORT INFORMATION
  Report Type: Spontaneous
  Country: CA (occurrence: CA)
  Receive Date: 20200318
  Receipt Date: 20200318
  Transmission Date: 20200409
  Serious: Yes (Hospitalization, Other)
  Sender: FDA-Public Use
  Company Number: CA-ALVOGEN-2020-ALVOGEN-107866

PATIENT
  Age: 52 Year
  Sex: Male

DRUGS (1)
  1. FENTANYL. [Suspect]
     Active Substance: FENTANYL
     Indication: PRODUCT USED FOR UNKNOWN INDICATION

REACTIONS (9)
  - Loss of consciousness [Recovered/Resolved]
  - Parkinsonism [Recovering/Resolving]
  - Amnestic disorder [Unknown]
  - Hypoxia [Unknown]
  - Cerebral ischaemia [Recovering/Resolving]
  - Intentional overdose [Unknown]
  - Leukoencephalopathy [Recovering/Resolving]
  - Hypoventilation [Unknown]
  - Toxicity to various agents [Unknown]
